FAERS Safety Report 23758645 (Version 1)
Quarter: 2024Q2

REPORT INFORMATION
  Report Type: Spontaneous
  Country: US (occurrence: None)
  Receive Date: 20240418
  Receipt Date: 20240418
  Transmission Date: 20240716
  Serious: No
  Sender: FDA-Public Use
  Company Number: US-ROCHE-3421223

PATIENT

DRUGS (9)
  1. AVASTIN [Suspect]
     Active Substance: BEVACIZUMAB
     Indication: Breast cancer female
     Route: 065
  2. AVASTIN [Suspect]
     Active Substance: BEVACIZUMAB
     Indication: Oestrogen receptor assay positive
  3. AVASTIN [Suspect]
     Active Substance: BEVACIZUMAB
     Indication: Metastases to lung
  4. NAPROXEN [Suspect]
     Active Substance: NAPROXEN
     Indication: Breast cancer female
     Route: 065
  5. NAPROXEN [Suspect]
     Active Substance: NAPROXEN
     Indication: Oestrogen receptor assay positive
  6. NAPROXEN [Suspect]
     Active Substance: NAPROXEN
     Indication: Metastases to lung
  7. IBRANCE [Suspect]
     Active Substance: PALBOCICLIB
     Indication: Breast cancer female
     Dosage: 28-DAY SUPPLY, TAKE 1 TAB DAILY FOR 21 DAYS OFF 7 DAYS
     Route: 048
  8. IBRANCE [Suspect]
     Active Substance: PALBOCICLIB
     Indication: Oestrogen receptor assay positive
  9. IBRANCE [Suspect]
     Active Substance: PALBOCICLIB
     Indication: Metastases to lung

REACTIONS (4)
  - Drug hypersensitivity [Unknown]
  - Nausea [Unknown]
  - Abdominal discomfort [Unknown]
  - Liver function test increased [Unknown]
